FAERS Safety Report 9239000 (Version 3)
Quarter: 2013Q2

REPORT INFORMATION
  Report Type: Spontaneous
  Country: US (occurrence: US)
  Receive Date: 20130418
  Receipt Date: 20130521
  Transmission Date: 20140414
  Serious: No
  Sender: FDA-Public Use
  Company Number: US-PFIZER INC-2013120723

PATIENT
  Age: 82 Year
  Sex: Female

DRUGS (12)
  1. SUTENT [Suspect]
     Indication: RENAL CANCER
     Dosage: 50 MG DAILY (4 WEEKS ON / 2 WEEKS OFF)
     Route: 048
     Dates: start: 20130306
  2. AMLODIPINE BESY-BENAZEPRIL HYDROCHLORIDE [Concomitant]
     Dosage: UNK
  3. FISH OIL [Concomitant]
     Dosage: UNK
  4. GLYBURIDE [Concomitant]
     Dosage: UNK
  5. LEVOTHYROXINE SODIUM [Concomitant]
     Dosage: UNK
  6. LOSARTAN POTASSIUM [Concomitant]
     Dosage: UNK
  7. METOPROLOL TARTRATE [Concomitant]
     Dosage: UNK
  8. PRAVASTATIN SODIUM [Concomitant]
     Dosage: UNK
  9. TERAZOSIN HYDROCHLORIDE [Concomitant]
     Dosage: UNK
  10. TYLENOL W/CODEINE NO. 3 [Concomitant]
     Dosage: UNK
  11. NYSTATIN [Concomitant]
     Dosage: UNK
  12. OMEPRAZOL [Concomitant]
     Dosage: UNK

REACTIONS (5)
  - Dyspepsia [Unknown]
  - Gastrooesophageal reflux disease [Unknown]
  - Dyspepsia [Unknown]
  - Nausea [Unknown]
  - Oral pain [Unknown]
